FAERS Safety Report 6143217-0 (Version None)
Quarter: 2009Q2

REPORT INFORMATION
  Report Type: 
  Country: None (occurrence: None)
  Receive Date: 20090401
  Receipt Date: 20090321
  Transmission Date: 20091009
  Serious: Yes (Other)
  Sender: FDA-Public Use
  Company Number: 239028J08USA

PATIENT
  Age: 42 Year
  Sex: Female
  Weight: 75 kg

DRUGS (6)
  1. REBIF [Suspect]
     Indication: MULTIPLE SCLEROSIS
     Dosage: 44 MCG, 3 IN 1 WEEKS, SUBCUTANEOUS
     Route: 058
     Dates: start: 20031027, end: 20080505
  2. HORMONE THERAPY(HORMONES AND RELATED AGENTS) [Suspect]
     Dates: start: 19980101, end: 20080101
  3. STEROIDS (CORTICOSTEROIDS) [Concomitant]
  4. FOSAMAX [Concomitant]
  5. ZYRTEC [Concomitant]
  6. TYLENOL SINUS (TYLENOL SINUS MEDICATION) [Concomitant]

REACTIONS (4)
  - BREAST CANCER IN SITU [None]
  - CONDITION AGGRAVATED [None]
  - LATEX ALLERGY [None]
  - MULTIPLE SCLEROSIS [None]
